FAERS Safety Report 4950412-2 (Version None)
Quarter: 2006Q1

REPORT INFORMATION
  Report Type: 
  Country: None (occurrence: None)
  Receive Date: 20060315
  Receipt Date: 20060302
  Transmission Date: 20060701
  Serious: Yes (Other)
  Sender: FDA-Public Use
  Company Number: 2006032599

PATIENT
  Age: 48 Year
  Sex: Female
  Weight: 52 kg

DRUGS (8)
  1. IRINOTECAN HCL [Suspect]
     Indication: METASTATIC NEOPLASM
     Dosage: 280 MG, INTRAVENOUS
     Route: 042
     Dates: start: 20060131
  2. AVASTIN (BAVACIZUMAB) [Concomitant]
  3. CALCIUM FOLINATE [Concomitant]
  4. FLUOROURACIL [Concomitant]
  5. OCTREOTIDE [Concomitant]
  6. LOPERAMIDE [Concomitant]
  7. MST CONTINUS ^ASTA MEDICA^ (MORPHINE SULFATE) [Concomitant]
  8. MORPHINE SULFATE [Concomitant]

REACTIONS (3)
  - DYSARTHRIA [None]
  - HYPERHIDROSIS [None]
  - SALIVARY HYPERSECRETION [None]
